FAERS Safety Report 6213956-1 (Version None)
Quarter: 2009Q2

REPORT INFORMATION
  Report Type: 
  Country: None (occurrence: None)
  Receive Date: 20090604
  Receipt Date: 20090529
  Transmission Date: 20091009
  Serious: Yes (Hospitalization)
  Sender: FDA-Public Use
  Company Number: US-JNJFOC-20090600100

PATIENT
  Sex: Female
  Weight: 54.43 kg

DRUGS (7)
  1. FENTANYL TRANSDERMAL SYSTEM [Suspect]
     Indication: PAIN
     Dosage: 100 UG/HR+100 UG/HR+100 UG/HR_100 UG/HR
     Route: 062
  2. CYMBALTA [Suspect]
     Indication: PAIN
     Route: 048
  3. LYRICA [Concomitant]
     Indication: PAIN
     Route: 048
  4. KETAMINE HCL [Concomitant]
     Indication: PAIN
     Route: 048
  5. OPANA [Concomitant]
     Indication: PAIN
     Route: 048
  6. WELLBUTRIN [Concomitant]
     Indication: ANTIDEPRESSANT THERAPY
     Route: 048
  7. AMBIEN [Concomitant]
     Indication: SLEEP DISORDER THERAPY
     Route: 048

REACTIONS (5)
  - DRUG ADMINISTERED AT INAPPROPRIATE SITE [None]
  - FALL [None]
  - HYPOTENSION [None]
  - INCORRECT DRUG ADMINISTRATION DURATION [None]
  - LOWER LIMB FRACTURE [None]
